FAERS Safety Report 5129564-X (Version None)
Quarter: 2006Q4

REPORT INFORMATION
  Report Type: 
  Country: None (occurrence: None)
  Receive Date: 20061018
  Receipt Date: 20061010
  Transmission Date: 20070319
  Serious: Yes (Hospitalization)
  Sender: FDA-Public Use
  Company Number: US-JNJFOC-20061002578

PATIENT
  Sex: Female
  Weight: 64.86 kg

DRUGS (6)
  1. DURAGESIC-100 [Suspect]
     Dosage: 1X 25UG/HR + 1X 12.5UG/HR PATCHES
     Route: 062
  2. DURAGESIC-100 [Suspect]
     Indication: PAIN
     Route: 062
  3. FENTANYL TRANSDERMAL SYSTEM [Suspect]
     Route: 062
  4. FENTANYL TRANSDERMAL SYSTEM [Suspect]
     Indication: PAIN
     Route: 062
  5. DILAUDID [Concomitant]
     Indication: BREAKTHROUGH PAIN
     Route: 048
  6. NEURONTIN [Concomitant]
     Indication: NERVOUSNESS
     Route: 048

REACTIONS (3)
  - DRUG EFFECT DECREASED [None]
  - HERPES ZOSTER [None]
  - WRONG TECHNIQUE IN DRUG USAGE PROCESS [None]
